FAERS Safety Report 23227438 (Version 1)
Quarter: 2023Q4

REPORT INFORMATION
  Report Type: Report from Study
  Country: US (occurrence: None)
  Receive Date: 20231124
  Receipt Date: 20231124
  Transmission Date: 20240110
  Serious: Yes (Other)
  Sender: FDA-Public Use
  Company Number: 2023A263791

PATIENT
  Sex: Female

DRUGS (1)
  1. TAGRISSO [Suspect]
     Active Substance: OSIMERTINIB
     Route: 048
     Dates: start: 20221018

REACTIONS (5)
  - Thrombosis [Unknown]
  - Mouth haemorrhage [Unknown]
  - Anaemia [Unknown]
  - Rash [Unknown]
  - Epistaxis [Unknown]
